FAERS Safety Report 20404645 (Version 2)
Quarter: 2022Q2

REPORT INFORMATION
  Report Type: Spontaneous
  Country: DE (occurrence: DE)
  Receive Date: 20220131
  Receipt Date: 20220420
  Transmission Date: 20220721
  Serious: Yes (Hospitalization)
  Sender: FDA-Public Use
  Company Number: DE-002147023-NVSC2022DE013638

PATIENT
  Age: 85 Year
  Sex: Female
  Weight: 64 kg

DRUGS (2)
  1. LUCENTIS [Suspect]
     Active Substance: RANIBIZUMAB
     Indication: Neovascular age-related macular degeneration
     Dosage: UNK, (EVERY 2-3 MONTH, LEFT EYE)
     Route: 050
     Dates: start: 2017, end: 20211209
  2. LUCENTIS [Suspect]
     Active Substance: RANIBIZUMAB
     Dosage: UNK, (EVERY 2-3 MONTHS, BOTH FOR RIGHT AND LEFT EYE)
     Route: 050
     Dates: start: 2017, end: 20211104

REACTIONS (1)
  - Cerebrovascular accident [Recovering/Resolving]

NARRATIVE: CASE EVENT DATE: 20211228
